FAERS Safety Report 7323114-5 (Version None)
Quarter: 2011Q1

REPORT INFORMATION
  Report Type: 
  Country: None (occurrence: None)
  Receive Date: 20110301
  Receipt Date: 20110223
  Transmission Date: 20110831
  Serious: Yes (Other)
  Sender: FDA-Public Use
  Company Number: US-ASTRAZENECA-2007UW25045

PATIENT
  Age: 15353 Day
  Sex: Male
  Weight: 158.8 kg

DRUGS (22)
  1. STRATTERA [Concomitant]
     Route: 048
     Dates: start: 20050920
  2. DEPAKOTE [Concomitant]
     Dates: start: 20061001
  3. GLUCOPHAGE [Concomitant]
     Route: 048
     Dates: start: 20050920
  4. PROTONIX [Concomitant]
     Route: 048
     Dates: start: 20040314
  5. ASPIRIN [Concomitant]
     Route: 048
     Dates: start: 20051122
  6. ALDACTONE [Concomitant]
     Route: 048
     Dates: start: 20080828
  7. ZYPREXA [Concomitant]
     Indication: DEPRESSION
     Dosage: 2.5MG-5MG
     Dates: start: 20010709, end: 20011101
  8. EFFEXOR XR [Concomitant]
     Dosage: 75-300 MG
     Dates: start: 20031220
  9. ALTACE [Concomitant]
     Route: 048
     Dates: start: 20050920
  10. SEROQUEL [Suspect]
     Indication: BIPOLAR DISORDER
     Dosage: 25MG-150MG, 200-300 MG
     Route: 048
     Dates: start: 20020530
  11. IMITREX [Concomitant]
     Indication: MIGRAINE
     Dosage: 12 MG/1 ML, HALF ML PRN, 6 MG INJECTION INJECT 0.5 ML SUBCUTANEOUSLY PRN FOR MIGRAINE
     Dates: start: 19950723
  12. NEXIUM [Concomitant]
     Route: 048
     Dates: start: 20080828
  13. SEROQUEL [Suspect]
     Indication: DEPRESSION
     Dosage: 25MG-150MG, 200-300 MG
     Route: 048
     Dates: start: 20020530
  14. RISPERDAL [Concomitant]
     Indication: DEPRESSION
     Dates: start: 20000309
  15. RISPERDAL [Concomitant]
     Indication: BIPOLAR DISORDER
     Dates: start: 20000309
  16. ZYPREXA [Concomitant]
     Indication: BIPOLAR DISORDER
     Dosage: 2.5MG-5MG
     Dates: start: 20010709, end: 20011101
  17. DEPAKOTE [Concomitant]
     Dates: start: 20060101
  18. NEURONTIN [Concomitant]
     Dosage: 200-300 MG
     Dates: start: 20011005
  19. CYMBALTA [Concomitant]
     Dosage: 30 MG TWO IN AM
     Dates: start: 20051105
  20. LASIX [Concomitant]
     Route: 048
     Dates: start: 20080828
  21. ABILIFY [Concomitant]
     Route: 048
     Dates: start: 20080828
  22. TOPROL-XL [Concomitant]
     Dosage: 25-50 MG
     Route: 048
     Dates: start: 20051105

REACTIONS (44)
  - GASTROOESOPHAGEAL REFLUX DISEASE [None]
  - PARAESTHESIA [None]
  - PAIN IN EXTREMITY [None]
  - HYPERHIDROSIS [None]
  - EAR DISCOMFORT [None]
  - CARPAL TUNNEL SYNDROME [None]
  - PYREXIA [None]
  - DYSURIA [None]
  - ABDOMINAL PAIN UPPER [None]
  - GASTRIC HAEMORRHAGE [None]
  - TYPE 2 DIABETES MELLITUS [None]
  - HYPERTENSION [None]
  - BARRETT'S OESOPHAGUS [None]
  - NAUSEA [None]
  - EAR PAIN [None]
  - SLEEP APNOEA SYNDROME [None]
  - FATIGUE [None]
  - SINUS DISORDER [None]
  - PHARYNGITIS [None]
  - GLUCOSE TOLERANCE IMPAIRED [None]
  - ULCER HAEMORRHAGE [None]
  - JOINT SWELLING [None]
  - LACERATION [None]
  - URINE COLOUR ABNORMAL [None]
  - DIABETES MELLITUS INADEQUATE CONTROL [None]
  - DYSPNOEA [None]
  - PARONYCHIA [None]
  - TREMOR [None]
  - SYNCOPE [None]
  - SINUSITIS [None]
  - MUSCLE STRAIN [None]
  - PRESYNCOPE [None]
  - WEIGHT INCREASED [None]
  - BREAST PAIN [None]
  - VISION BLURRED [None]
  - OROPHARYNGEAL PAIN [None]
  - BACK PAIN [None]
  - CHEST PAIN [None]
  - GASTRIC ULCER [None]
  - INSULIN RESISTANCE SYNDROME [None]
  - HYPOAESTHESIA [None]
  - NASOPHARYNGITIS [None]
  - ABDOMINAL PAIN [None]
  - ESSENTIAL HYPERTENSION [None]
